FAERS Safety Report 7712374-4 (Version None)
Quarter: 2011Q3

REPORT INFORMATION
  Report Type: 
  Country: None (occurrence: None)
  Receive Date: 20110826
  Receipt Date: 20110818
  Transmission Date: 20111222
  Serious: Yes (Other)
  Sender: FDA-Public Use
  Company Number: US-JNJFOC-20110810511

PATIENT
  Sex: Female
  Weight: 75 kg

DRUGS (14)
  1. ICAPS [Concomitant]
     Dates: start: 20040101
  2. MS CONTIN [Concomitant]
     Route: 048
     Dates: start: 20100324
  3. ALLEGRA D 24 HOUR [Concomitant]
     Route: 048
     Dates: start: 20090720
  4. FOLIC ACID [Concomitant]
     Route: 048
     Dates: start: 20110506
  5. FOSAMAX [Concomitant]
     Route: 048
     Dates: start: 20090429
  6. XANAX [Concomitant]
     Route: 048
     Dates: start: 20090311
  7. SODIUM CHLORIDE [Concomitant]
     Route: 047
     Dates: start: 20000101
  8. VOLTAREN [Concomitant]
     Route: 061
     Dates: start: 20091014
  9. VICODIN [Concomitant]
     Route: 048
     Dates: start: 20060809
  10. GOLIMUMAB [Suspect]
     Indication: RHEUMATOID ARTHRITIS
     Route: 058
     Dates: start: 20060628
  11. ESTRACE [Concomitant]
     Route: 067
     Dates: start: 20110301
  12. RELAFEN [Concomitant]
     Route: 048
     Dates: start: 20100317
  13. ALPRAZOLAM [Concomitant]
     Route: 048
     Dates: start: 20071206
  14. METHOTREXATE [Concomitant]
     Indication: RHEUMATOID ARTHRITIS
     Route: 048
     Dates: start: 20080603

REACTIONS (1)
  - BASAL CELL CARCINOMA [None]
